FAERS Safety Report 10501048 (Version 2)
Quarter: 2014Q4

REPORT INFORMATION
  Report Type: Spontaneous
  Country: JP (occurrence: JP)
  Receive Date: 20141007
  Receipt Date: 20141007
  Transmission Date: 20150528
  Serious: Yes (Hospitalization)
  Sender: FDA-Public Use
  Company Number: PHHY2014JP120197

PATIENT
  Sex: Male

DRUGS (1)
  1. ULTIBRO BREEZHALER [Suspect]
     Active Substance: GLYCOPYRRONIUM\INDACATEROL
     Indication: CHRONIC OBSTRUCTIVE PULMONARY DISEASE
     Dosage: UNK UKN, UNK
     Route: 055
     Dates: start: 201408

REACTIONS (3)
  - Bronchopulmonary aspergillosis [Recovered/Resolved]
  - Pyrexia [Unknown]
  - Asthma [Unknown]

NARRATIVE: CASE EVENT DATE: 201409
